FAERS Safety Report 9346381 (Version 2)
Quarter: 2014Q2

REPORT INFORMATION
  Report Type: Spontaneous
  Country: US (occurrence: US)
  Receive Date: 20130613
  Receipt Date: 20140513
  Transmission Date: 20141212
  Serious: Yes (Other)
  Sender: FDA-Public Use
  Company Number: US-LUNDBECK-DKLU1091505

PATIENT
  Sex: Male

DRUGS (3)
  1. ONFI [Suspect]
     Indication: LENNOX-GASTAUT SYNDROME
     Dosage: 15MG/20 MG
  2. SEROQUEL [Concomitant]
     Indication: PRODUCT USED FOR UNKNOWN INDICATION
  3. NEURONTIN [Concomitant]
     Indication: PRODUCT USED FOR UNKNOWN INDICATION

REACTIONS (1)
  - Urinary retention [Recovered/Resolved]
